FAERS Safety Report 16836605 (Version 1)
Quarter: 2019Q3

REPORT INFORMATION
  Report Type: Report from Study
  Country: None (occurrence: US)
  Receive Date: 20190921
  Receipt Date: 20190921
  Transmission Date: 20191005
  Serious: Yes (Other)
  Sender: FDA-Public Use
  Company Number: US-ABBVIE-19K-163-2925849-00

PATIENT
  Sex: Male

DRUGS (1)
  1. VENCLEXTA [Suspect]
     Active Substance: VENETOCLAX
     Indication: CHRONIC LYMPHOCYTIC LEUKAEMIA
     Route: 048
     Dates: start: 201808

REACTIONS (15)
  - Pneumonia pseudomonal [Unknown]
  - Diarrhoea [Recovered/Resolved]
  - Arthralgia [Unknown]
  - Mean cell haemoglobin concentration increased [Unknown]
  - Cardiac failure congestive [Unknown]
  - Hypogammaglobulinaemia [Unknown]
  - Neutropenia [Unknown]
  - Transaminases increased [Unknown]
  - Monocyte count increased [Unknown]
  - Blood creatinine increased [Unknown]
  - Psoriatic arthropathy [Unknown]
  - Platelet count decreased [Unknown]
  - Mean platelet volume increased [Unknown]
  - White blood cell count decreased [Unknown]
  - Blood glucose increased [Unknown]
